FAERS Safety Report 6769515-5 (Version None)
Quarter: 2010Q2

REPORT INFORMATION
  Report Type: 
  Country: None (occurrence: None)
  Receive Date: 20100615
  Receipt Date: 20100609
  Transmission Date: 20101027
  Serious: Yes (Hospitalization)
  Sender: FDA-Public Use
  Company Number: KR-SANOFI-AVENTIS-2010SA009464

PATIENT
  Age: 47 Year
  Sex: Male
  Weight: 66.4 kg

DRUGS (16)
  1. AFLIBERCEPT [Suspect]
     Indication: NON-SMALL CELL LUNG CANCER METASTATIC
     Route: 042
     Dates: start: 20091013, end: 20091013
  2. AFLIBERCEPT [Suspect]
     Route: 042
     Dates: start: 20100127, end: 20100127
  3. AFLIBERCEPT [Suspect]
     Route: 042
     Dates: start: 20100219, end: 20100219
  4. DOCETAXEL [Suspect]
     Indication: NON-SMALL CELL LUNG CANCER METASTATIC
     Route: 042
     Dates: start: 20091013, end: 20091013
  5. DOCETAXEL [Suspect]
     Route: 042
     Dates: start: 20100127, end: 20100127
  6. DOCETAXEL [Suspect]
     Route: 042
     Dates: start: 20100219, end: 20100219
  7. CORTICOSTEROIDS [Concomitant]
  8. DEXAMETHASONE [Concomitant]
     Dates: start: 20091013
  9. DIAZEPAM [Concomitant]
     Dates: start: 20091013
  10. PHENIRAMINE [Concomitant]
     Dates: start: 20091013
  11. TAGAMET [Concomitant]
     Dates: start: 20091013
  12. OXYCODONE [Concomitant]
     Dates: start: 20091013
  13. CIPROFLOXACIN [Concomitant]
     Dates: start: 20091018
  14. FILGRASTIM [Concomitant]
     Dates: start: 20091104
  15. COUGH SYRUP [Concomitant]
     Dates: start: 20091215
  16. ALLEGRA D 24 HOUR [Concomitant]
     Dates: start: 20100106

REACTIONS (1)
  - HYPERKALAEMIA [None]
